FAERS Safety Report 18563207 (Version 1)
Quarter: 2020Q4

REPORT INFORMATION
  Report Type: Spontaneous
  Country: CA (occurrence: CA)
  Receive Date: 20201201
  Receipt Date: 20201201
  Transmission Date: 20210114
  Serious: Yes (Hospitalization, Other)
  Sender: FDA-Public Use
  Company Number: CA-GLAXOSMITHKLINE-A0874202A

PATIENT
  Age: 65 Year
  Sex: Male

DRUGS (2)
  1. AVANDIA [Suspect]
     Active Substance: ROSIGLITAZONE MALEATE
     Indication: DIABETES MELLITUS
     Dosage: 4 MG, QD
     Route: 048
     Dates: start: 20011214, end: 20021117
  2. AVANDIA [Suspect]
     Active Substance: ROSIGLITAZONE MALEATE
     Dosage: 8 MG, QD
     Route: 048
     Dates: start: 20030201, end: 20060121

REACTIONS (6)
  - Cardiac failure congestive [Unknown]
  - Cardiomyopathy [Unknown]
  - Pericarditis constrictive [Unknown]
  - Cardiac disorder [Unknown]
  - Pericardial excision [Unknown]
  - Pericarditis [Unknown]

NARRATIVE: CASE EVENT DATE: 200701
